FAERS Safety Report 11562276 (Version 41)
Quarter: 2019Q3

REPORT INFORMATION
  Report Type: Report from Study
  Country: AU (occurrence: AU)
  Receive Date: 20150928
  Receipt Date: 20190911
  Transmission Date: 20191004
  Serious: Yes (Hospitalization, Other)
  Sender: FDA-Public Use
  Company Number: AU-SA-2015SA133432

PATIENT
  Age: 36 Year
  Sex: Female
  Weight: 81.5 kg

DRUGS (20)
  1. ALEMTUZUMAB [Suspect]
     Active Substance: ALEMTUZUMAB
     Dosage: 12 MG,QD
     Route: 041
     Dates: start: 20150817, end: 20150821
  2. AMOXICILLIN/CLAVULANIC ACID [Concomitant]
     Active Substance: AMOXICILLIN\CLAVULANIC ACID
     Indication: PROPHYLAXIS
     Dosage: 2 TABLETS,QD
     Route: 048
     Dates: start: 20150821, end: 20150830
  3. TEMAZEPAM. [Concomitant]
     Active Substance: TEMAZEPAM
     Indication: PROPHYLAXIS
     Dosage: 10 MG,QD
     Route: 048
     Dates: start: 20150915, end: 20150915
  4. PANADOL [Concomitant]
     Active Substance: ACETAMINOPHEN
     Indication: DRUG THERAPY
     Dosage: 6 G,QD
     Route: 048
     Dates: start: 1998
  5. RANITIDINE. [Concomitant]
     Active Substance: RANITIDINE
     Dosage: 300 MG,QD
     Route: 048
     Dates: start: 20160212, end: 20160214
  6. ENDEP [Concomitant]
     Active Substance: AMITRIPTYLINE HYDROCHLORIDE
     Indication: DRUG THERAPY
     Dosage: 5 MG,QD
     Route: 048
     Dates: start: 2015
  7. NYSTATIN. [Concomitant]
     Active Substance: NYSTATIN
     Indication: DRUG THERAPY
     Dosage: 4 ML,QD
     Route: 048
     Dates: start: 20150823, end: 20150826
  8. ALEMTUZUMAB [Suspect]
     Active Substance: ALEMTUZUMAB
     Dosage: 12 MG,QD
     Route: 041
     Dates: start: 20160818, end: 20160819
  9. ALEMTUZUMAB [Suspect]
     Active Substance: ALEMTUZUMAB
     Indication: RELAPSING MULTIPLE SCLEROSIS
     Dosage: 12 MG,QD
     Route: 041
     Dates: start: 20160817, end: 20160817
  10. LORATADINE. [Concomitant]
     Active Substance: LORATADINE
     Indication: PROPHYLAXIS
     Dosage: 10 MG,QD
     Route: 048
     Dates: start: 20150816
  11. IBUPROFEN. [Concomitant]
     Active Substance: IBUPROFEN
     Indication: DRUG THERAPY
     Dosage: 1.6 G,QD
     Route: 048
     Dates: start: 20150817
  12. LYRICA [Concomitant]
     Active Substance: PREGABALIN
     Indication: DRUG THERAPY
     Dosage: 300 MG,QD
     Route: 048
     Dates: start: 2014, end: 20151201
  13. VALACICLOVIR [Concomitant]
     Active Substance: VALACYCLOVIR HYDROCHLORIDE
     Indication: PROPHYLAXIS
     Dosage: 500 MG,QD
     Route: 048
     Dates: start: 20150816
  14. PROPRANOLOL [Concomitant]
     Active Substance: PROPRANOLOL HYDROCHLORIDE
     Indication: MIGRAINE
     Dosage: 40 MG,QD
     Route: 048
     Dates: start: 2014
  15. LYRICA [Concomitant]
     Active Substance: PREGABALIN
     Indication: MULTIPLE SCLEROSIS
  16. ENDEP [Concomitant]
     Active Substance: AMITRIPTYLINE HYDROCHLORIDE
     Indication: MULTIPLE SCLEROSIS
  17. CLEXANE [Concomitant]
     Active Substance: ENOXAPARIN SODIUM
     Indication: PROPHYLAXIS
     Dosage: 40 MG,QD
     Route: 058
     Dates: start: 20150915, end: 20150916
  18. ALEMTUZUMAB [Suspect]
     Active Substance: ALEMTUZUMAB
     Dosage: 12 MG,QD
     Route: 041
     Dates: start: 20160817, end: 20160817
  19. RANITIDINE. [Concomitant]
     Active Substance: RANITIDINE
     Indication: PROPHYLAXIS
     Dosage: 300 MG,QD
     Route: 048
     Dates: start: 20150816
  20. TEMAZEPAM. [Concomitant]
     Active Substance: TEMAZEPAM
     Indication: DRUG THERAPY
     Dosage: 10 MG,QD
     Route: 048
     Dates: start: 20150817

REACTIONS (56)
  - Thyroid mass [Recovered/Resolved]
  - Nausea [Recovered/Resolved]
  - Hypotension [Recovered/Resolved]
  - Dizziness [Recovered/Resolved]
  - Foot fracture [Recovered/Resolved]
  - Migraine [Recovered/Resolved]
  - Haematuria [Recovered/Resolved]
  - Urinary tract infection [Recovered/Resolved]
  - Liver function test increased [Not Recovered/Not Resolved]
  - Back pain [Recovered/Resolved]
  - Vomiting [Recovered/Resolved]
  - Nausea [Not Recovered/Not Resolved]
  - Pleuritic pain [Recovered/Resolved]
  - Bile duct obstruction [Recovered/Resolved]
  - Paraesthesia [Not Recovered/Not Resolved]
  - Albumin urine present [Recovered/Resolved]
  - Influenza [Recovered/Resolved]
  - Urinary retention [Recovered/Resolved with Sequelae]
  - Vision blurred [Not Recovered/Not Resolved]
  - Pain in extremity [Not Recovered/Not Resolved]
  - Albumin urine present [Not Recovered/Not Resolved]
  - Tachycardia [Recovered/Resolved]
  - Seizure [Recovered/Resolved]
  - Decreased appetite [Unknown]
  - Burning sensation [Recovered/Resolved]
  - Liver function test abnormal [Not Recovered/Not Resolved]
  - Migraine [Not Recovered/Not Resolved]
  - Fatigue [Not Recovered/Not Resolved]
  - Peripheral swelling [Recovered/Resolved]
  - Blood thyroid stimulating hormone decreased [Recovered/Resolved]
  - Headache [Not Recovered/Not Resolved]
  - Upper respiratory tract infection [Recovered/Resolved]
  - Flushing [Recovered/Resolved]
  - Animal bite [Recovered/Resolved with Sequelae]
  - Migraine [Recovered/Resolved]
  - Muscle spasms [Not Recovered/Not Resolved]
  - Muscle spasms [Recovered/Resolved]
  - Dizziness [Recovered/Resolved]
  - Diarrhoea [Recovered/Resolved]
  - Oral candidiasis [Recovered/Resolved]
  - Urinary tract infection [Recovered/Resolved]
  - Basedow^s disease [Not Recovered/Not Resolved]
  - Neuralgia [Not Recovered/Not Resolved]
  - Back pain [Not Recovered/Not Resolved]
  - Muscular weakness [Not Recovered/Not Resolved]
  - Pyelonephritis [Recovered/Resolved]
  - Limb discomfort [Unknown]
  - Multiple sclerosis relapse [Recovered/Resolved]
  - Tooth infection [Recovered/Resolved]
  - Hyperthyroidism [Recovered/Resolved]
  - Flank pain [Not Recovered/Not Resolved]
  - Pain [Recovered/Resolved]
  - Nausea [Recovered/Resolved]
  - Headache [Recovering/Resolving]
  - Constipation [Recovered/Resolved]
  - Hypoaesthesia [Not Recovered/Not Resolved]

NARRATIVE: CASE EVENT DATE: 20150817
